FAERS Safety Report 9434028 (Version 1)
Quarter: 2013Q3

REPORT INFORMATION
  Report Type: Spontaneous
  Country: US (occurrence: US)
  Receive Date: 20130801
  Receipt Date: 20130801
  Transmission Date: 20140515
  Serious: No
  Sender: FDA-Public Use
  Company Number: US-BIOGENIDEC-2013BI067665

PATIENT
  Age: 47 Year
  Sex: Female

DRUGS (3)
  1. AVONEX [Suspect]
     Indication: MULTIPLE SCLEROSIS
     Route: 030
     Dates: start: 20130621
  2. AVONEX [Suspect]
     Indication: MULTIPLE SCLEROSIS
     Route: 030
     Dates: start: 20130715
  3. LIPITOR [Concomitant]
     Indication: HYPERTENSION
     Route: 048

REACTIONS (15)
  - Somnolence [Not Recovered/Not Resolved]
  - Dry mouth [Not Recovered/Not Resolved]
  - Hallucination [Recovered/Resolved]
  - Mobility decreased [Unknown]
  - Pollakiuria [Not Recovered/Not Resolved]
  - Crying [Not Recovered/Not Resolved]
  - Asthenia [Not Recovered/Not Resolved]
  - Headache [Recovered/Resolved]
  - Vomiting [Recovered/Resolved]
  - Muscular weakness [Recovered/Resolved]
  - Influenza like illness [Recovered/Resolved]
  - Dizziness [Recovered/Resolved]
  - Nausea [Recovered/Resolved]
  - Decreased appetite [Not Recovered/Not Resolved]
  - Anxiety [Unknown]
